FAERS Safety Report 8525954-3 (Version None)
Quarter: 2012Q3

REPORT INFORMATION
  Report Type: 
  Country: None (occurrence: None)
  Receive Date: 20120720
  Receipt Date: 20120717
  Transmission Date: 20120928
  Serious: No
  Sender: FDA-Public Use
  Company Number: US-PFIZER INC-2012172570

PATIENT
  Sex: Female
  Weight: 90.703 kg

DRUGS (4)
  1. IBUPROFEN [Suspect]
     Indication: OROPHARYNGEAL PAIN
     Dosage: 200 MG, AS NEEDED
     Dates: start: 20120713, end: 20120716
  2. IBUPROFEN [Suspect]
     Indication: PAIN
  3. IBUPROFEN [Suspect]
     Indication: INFLAMMATION
  4. ALBUTEROL [Concomitant]
     Indication: ASTHMA
     Dosage: UNK, AS NEEDED

REACTIONS (1)
  - DRUG INEFFECTIVE [None]
